FAERS Safety Report 13621174 (Version 1)
Quarter: 2017Q2

REPORT INFORMATION
  Report Type: Spontaneous
  Country: US (occurrence: US)
  Receive Date: 20170607
  Receipt Date: 20170607
  Transmission Date: 20170830
  Serious: Yes (Hospitalization, Other)
  Sender: FDA-Public Use
  Company Number: US-TEVA-775193USA

PATIENT
  Age: 1 Year
  Sex: Female
  Weight: 11 kg

DRUGS (5)
  1. ARA-C [Suspect]
     Active Substance: CYTARABINE
     Indication: ACUTE MEGAKARYOCYTIC LEUKAEMIA
     Route: 065
     Dates: start: 201704
  2. FLAGYL [Suspect]
     Active Substance: METRONIDAZOLE\METRONIDAZOLE HYDROCHLORIDE
     Indication: CLOSTRIDIUM DIFFICILE INFECTION
     Route: 048
     Dates: start: 201704, end: 201705
  3. DAUNORUBICIN [Suspect]
     Active Substance: DAUNORUBICIN
     Indication: ACUTE MEGAKARYOCYTIC LEUKAEMIA
     Route: 065
     Dates: start: 201704
  4. ETOPOSIDE. [Suspect]
     Active Substance: ETOPOSIDE
     Indication: ACUTE MEGAKARYOCYTIC LEUKAEMIA
     Route: 065
     Dates: start: 201704
  5. VFEND [Suspect]
     Active Substance: VORICONAZOLE
     Indication: PROPHYLAXIS
     Dosage: 1.6 ML TWICE DAILY
     Route: 048
     Dates: start: 2017

REACTIONS (8)
  - Streptococcal bacteraemia [Recovered/Resolved]
  - Pyrexia [Recovered/Resolved]
  - Thrombocytopenia [Unknown]
  - Hypophagia [Recovering/Resolving]
  - Neutropenia [Unknown]
  - Fluid intake reduced [Recovering/Resolving]
  - Clostridium difficile colitis [Recovering/Resolving]
  - Weight decreased [Recovering/Resolving]

NARRATIVE: CASE EVENT DATE: 2017
